FAERS Safety Report 20090844 (Version 7)
Quarter: 2023Q2

REPORT INFORMATION
  Report Type: Other
  Country: JP (occurrence: JP)
  Receive Date: 20211119
  Receipt Date: 20230607
  Transmission Date: 20230721
  Serious: Yes (Other)
  Sender: FDA-Public Use
  Company Number: JP-CHUGAI-2021023999

PATIENT
  Age: 71 Year
  Sex: Male
  Weight: 50.9 kg

DRUGS (5)
  1. ATEZOLIZUMAB [Suspect]
     Active Substance: ATEZOLIZUMAB
     Indication: Neuroendocrine tumour of the lung
     Route: 041
     Dates: start: 20210914, end: 20210914
  2. CARBOPLATIN [Suspect]
     Active Substance: CARBOPLATIN
     Indication: Neuroendocrine tumour of the lung
     Route: 041
     Dates: start: 20210914, end: 20210914
  3. ETOPOSIDE [Suspect]
     Active Substance: ETOPOSIDE
     Indication: Neuroendocrine tumour of the lung
     Route: 041
     Dates: start: 20210914, end: 20210916
  4. AMLODIPINE\TELMISARTAN [Suspect]
     Active Substance: AMLODIPINE\TELMISARTAN
     Indication: Product used for unknown indication
     Route: 048
  5. DOTINURAD [Suspect]
     Active Substance: DOTINURAD
     Indication: Hyperuricaemia
     Route: 048

REACTIONS (6)
  - Pulmonary fibrosis [Not Recovered/Not Resolved]
  - White blood cell count decreased [Recovered/Resolved]
  - Dysuria [Unknown]
  - Hepatic function abnormal [Recovered/Resolved]
  - Blood creatinine increased [Recovering/Resolving]
  - Immune system disorder [Unknown]

NARRATIVE: CASE EVENT DATE: 20211001
